FAERS Safety Report 10341238 (Version 1)
Quarter: 2014Q3

REPORT INFORMATION
  Report Type: Spontaneous
  Country: US (occurrence: US)
  Receive Date: 20140725
  Receipt Date: 20140725
  Transmission Date: 20150326
  Serious: No
  Sender: FDA-Public Use
  Company Number: US-AMGEN-USASP2014054380

PATIENT
  Age: 74 Year
  Sex: Female

DRUGS (2)
  1. ENBREL [Suspect]
     Active Substance: ETANERCEPT
     Indication: RHEUMATOID ARTHRITIS
     Dosage: 50 MG, QWK
     Route: 065
     Dates: start: 20100101
  2. METHOTREXATE [Concomitant]
     Active Substance: METHOTREXATE
     Dosage: 10 MG, QWK
     Route: 048

REACTIONS (5)
  - Localised infection [Recovered/Resolved]
  - Gait disturbance [Not Recovered/Not Resolved]
  - Varicose vein [Not Recovered/Not Resolved]
  - Bacterial infection [Recovered/Resolved]
  - Spider vein [Not Recovered/Not Resolved]

NARRATIVE: CASE EVENT DATE: 201312
